FAERS Safety Report 6437605-2 (Version None)
Quarter: 2009Q4

REPORT INFORMATION
  Report Type: 
  Country: None (occurrence: None)
  Receive Date: 20091106
  Receipt Date: 20090917
  Transmission Date: 20100525
  Serious: Yes (Other)
  Sender: FDA-Public Use
  Company Number: WAES 0909USA02429

PATIENT
  Sex: Female

DRUGS (1)
  1. JANUMET [Suspect]
     Indication: TYPE 2 DIABETES MELLITUS
     Dosage: 500MG/50 MG/BID/PO
     Route: 048
     Dates: start: 20090827, end: 20090903

REACTIONS (2)
  - HEPATIC ENZYME INCREASED [None]
  - PANCREATITIS [None]
